FAERS Safety Report 8585674 (Version 10)
Quarter: 2014Q1

REPORT INFORMATION
  Report Type: Spontaneous
  Country: US (occurrence: US)
  Receive Date: 20120530
  Receipt Date: 20140313
  Transmission Date: 20141002
  Serious: Yes (Hospitalization, Disabling)
  Sender: FDA-Public Use
  Company Number: US-GLAXOSMITHKLINE-A0970854A

PATIENT
  Age: 52 Year
  Sex: Female
  Weight: 119.5 kg

DRUGS (15)
  1. FLOLAN [Suspect]
     Indication: PULMONARY ARTERIAL HYPERTENSION
     Dosage: 15NGKM CONTINUOUS
     Route: 065
     Dates: start: 20040607
  2. ADVAIR [Suspect]
     Indication: ASTHMA
     Dosage: 1PUFF TWICE PER DAY
     Route: 055
     Dates: start: 20120224
  3. FUROSEMIDE [Concomitant]
  4. COUMADIN [Concomitant]
  5. LETAIRIS [Concomitant]
  6. REVATIO [Concomitant]
  7. OXYGEN [Concomitant]
  8. ACETAMINOPHEN [Concomitant]
  9. BUPROPION HYDROCHLORIDE [Concomitant]
  10. CENTRUM [Concomitant]
  11. KLOR-CON [Concomitant]
  12. LORATADINE [Concomitant]
  13. MELATONIN [Concomitant]
  14. SINGULAIR [Concomitant]
  15. SPIRONOLACTONE [Concomitant]

REACTIONS (23)
  - Staphylococcal infection [Recovered/Resolved]
  - Bronchial irritation [Recovered/Resolved]
  - Infection [Recovered/Resolved]
  - Medical device complication [Recovered/Resolved]
  - Abdominal discomfort [Recovered/Resolved]
  - Nausea [Recovered/Resolved]
  - Fatigue [Recovered/Resolved]
  - Anxiety [Recovered/Resolved]
  - Malaise [Unknown]
  - Acute sinusitis [Unknown]
  - Chronic sinusitis [Not Recovered/Not Resolved]
  - Cough [Unknown]
  - Emotional distress [Unknown]
  - Crying [Unknown]
  - Productive cough [Not Recovered/Not Resolved]
  - Nasopharyngitis [Not Recovered/Not Resolved]
  - Otitis externa [Unknown]
  - Menorrhagia [Unknown]
  - Anaemia [Unknown]
  - Dyspnoea [Unknown]
  - Oral candidiasis [Unknown]
  - Treatment noncompliance [Unknown]
  - Drug administration error [Unknown]
